FAERS Safety Report 18288331 (Version 1)
Quarter: 2020Q3

REPORT INFORMATION
  Report Type: Spontaneous
  Country: US (occurrence: US)
  Receive Date: 20200918
  Receipt Date: 20200918
  Transmission Date: 20201103
  Serious: No
  Sender: FDA-Public Use
  Company Number: None

PATIENT
  Age: 49 Year
  Sex: Female

DRUGS (2)
  1. HUMIRA [Suspect]
     Active Substance: ADALIMUMAB
     Indication: CROHN^S DISEASE
     Route: 058
     Dates: start: 20200530
  2. CHOLESTYRAM [Concomitant]
     Active Substance: CHOLESTYRAMINE

REACTIONS (2)
  - Skin discolouration [None]
  - Diarrhoea [None]

NARRATIVE: CASE EVENT DATE: 20200904
